FAERS Safety Report 6107814-0 (Version None)
Quarter: 2009Q1

REPORT INFORMATION
  Report Type: 
  Country: None (occurrence: None)
  Receive Date: 20090309
  Receipt Date: 20090227
  Transmission Date: 20090719
  Serious: Yes (Other)
  Sender: FDA-Public Use
  Company Number: B0563675A

PATIENT
  Age: 10 Year
  Sex: Female
  Weight: 35 kg

DRUGS (9)
  1. ZIDOVUDINE [Suspect]
     Indication: HIV INFECTION
     Dosage: 250MG TWICE PER DAY
  2. LAMIVUDINE [Suspect]
     Indication: HIV INFECTION
     Dosage: 150MG TWICE PER DAY
  3. LOPINAVIR AND RITONAVIR [Suspect]
     Indication: HIV INFECTION
     Dosage: 280MG TWICE PER DAY
  4. SULFAMETHOXAZOLE AND TRIMETHOPRIM [Concomitant]
  5. HYDROCORTISONE [Concomitant]
  6. MICONAZOLE [Concomitant]
  7. PREDNISOLONE [Concomitant]
  8. AZATHIOPRINE [Concomitant]
     Indication: INFLAMMATION
  9. ABACAVIR [Concomitant]
     Indication: HIV INFECTION
     Dosage: 300MG TWICE PER DAY

REACTIONS (6)
  - ANAEMIA [None]
  - IMMUNE RECONSTITUTION SYNDROME [None]
  - LEUKOPENIA [None]
  - PRURITUS [None]
  - PYREXIA [None]
  - RASH [None]
